FAERS Safety Report 6493227-9 (Version None)
Quarter: 2009Q4

REPORT INFORMATION
  Report Type: 
  Country: None (occurrence: None)
  Receive Date: 20091214
  Receipt Date: 20091202
  Transmission Date: 20100525
  Serious: Yes (Other)
  Sender: FDA-Public Use
  Company Number: NO-AMGEN-US372118

PATIENT
  Sex: Female

DRUGS (2)
  1. ENBREL [Suspect]
     Indication: PSORIASIS
     Route: 058
     Dates: start: 20070401, end: 20090801
  2. METHOTREXATE [Concomitant]
     Indication: PSORIASIS
     Dosage: DOSE 7,5 MG WEEKLY
     Route: 048
     Dates: start: 20051001, end: 20090801

REACTIONS (9)
  - BLOOD PRESSURE INCREASED [None]
  - CONDITION AGGRAVATED [None]
  - FATIGUE [None]
  - HYPOAESTHESIA ORAL [None]
  - NEUROPATHY PERIPHERAL [None]
  - PALPITATIONS [None]
  - PETECHIAE [None]
  - PSORIASIS [None]
  - VERTIGO [None]
